FAERS Safety Report 12529938 (Version 1)
Quarter: 2016Q3

REPORT INFORMATION
  Report Type: Spontaneous
  Country: US (occurrence: None)
  Receive Date: 20160705
  Receipt Date: 20160705
  Transmission Date: 20161109
  Serious: Yes (Disabling)
  Sender: FDA-Public Use
  Company Number: None

PATIENT
  Age: 60 Year

DRUGS (2)
  1. Z-PACK [Suspect]
     Active Substance: AZITHROMYCIN DIHYDRATE
  2. SERTRALINE CAMBER PHARMACEUTICALS [Suspect]
     Active Substance: SERTRALINE HYDROCHLORIDE

REACTIONS (2)
  - Product substitution issue [None]
  - Drug ineffective [None]

NARRATIVE: CASE EVENT DATE: 20160516
